FAERS Safety Report 23191776 (Version 1)
Quarter: 2023Q4

REPORT INFORMATION
  Report Type: Spontaneous
  Country: US (occurrence: US)
  Receive Date: 20231116
  Receipt Date: 20231116
  Transmission Date: 20240110
  Serious: Yes (Other)
  Sender: FDA-Public Use
  Company Number: US-BAYER-2023A159942

PATIENT
  Age: 22 Year
  Sex: Female

DRUGS (1)
  1. KYLEENA [Suspect]
     Active Substance: LEVONORGESTREL
     Indication: Menstruation irregular
     Dosage: 17.5?G/DAY
     Route: 015
     Dates: start: 20211123, end: 20230929

REACTIONS (4)
  - Embedded device [Recovered/Resolved]
  - Dysmenorrhoea [Recovered/Resolved]
  - Off label use [None]
  - Device use issue [None]

NARRATIVE: CASE EVENT DATE: 20220101
